FAERS Safety Report 7586776-3 (Version None)
Quarter: 2011Q3

REPORT INFORMATION
  Report Type: 
  Country: None (occurrence: None)
  Receive Date: 20110701
  Receipt Date: 20110616
  Transmission Date: 20111222
  Serious: No
  Sender: FDA-Public Use
  Company Number: US-B.I. PHARMACEUTICALS,INC./RIDGEFIELD-2011-BP-13622BP

PATIENT
  Sex: Male

DRUGS (9)
  1. LEXAPRO [Concomitant]
  2. MESYLATE [Concomitant]
  3. PLAVIX [Suspect]
     Dates: start: 20110401
  4. DOXAZOSIN MESYLATE [Concomitant]
  5. OMEPRAZOLE [Concomitant]
     Dates: end: 20110401
  6. METOPROLOL TARTRATE [Concomitant]
  7. ZANTAC 75 [Suspect]
     Dosage: 75 MG
     Route: 048
     Dates: start: 20110401
  8. ZOCOR [Concomitant]
  9. PANTOPRAZOLE [Concomitant]

REACTIONS (1)
  - GASTROOESOPHAGEAL REFLUX DISEASE [None]
